FAERS Safety Report 18360314 (Version 1)
Quarter: 2020Q4

REPORT INFORMATION
  Report Type: Spontaneous
  Country: US (occurrence: US)
  Receive Date: 20201008
  Receipt Date: 20201008
  Transmission Date: 20210114
  Serious: No
  Sender: FDA-Public Use
  Company Number: US-INDIVIOR US-INDV-122749-2019

PATIENT
  Age: 56 Year
  Sex: Female

DRUGS (4)
  1. LISINOPRIL. [Concomitant]
     Active Substance: LISINOPRIL
     Indication: HYPERTENSION
     Dosage: 20 MG, UNK
     Route: 065
  2. ALKA SELTZER PLUS                  /00002701/ [Concomitant]
     Active Substance: ASPIRIN
     Indication: PROPHYLAXIS
     Dosage: UNK, DURING NIGHT TIME
     Route: 065
  3. SUBOXONE [Suspect]
     Active Substance: BUPRENORPHINE HYDROCHLORIDE\NALOXONE HYDROCHLORIDE
     Indication: DRUG DEPENDENCE
     Dosage: 8 MG, UNK
     Route: 060
  4. SUBOXONE [Suspect]
     Active Substance: BUPRENORPHINE HYDROCHLORIDE\NALOXONE HYDROCHLORIDE
     Dosage: UNK, TORE A PIECE OF FILM
     Route: 060
     Dates: start: 2019, end: 2019

REACTIONS (12)
  - Drug withdrawal syndrome [Unknown]
  - Drug intolerance [Unknown]
  - Chills [Unknown]
  - Wrong technique in product usage process [Recovered/Resolved]
  - Muscle spasms [Unknown]
  - Intentional underdose [Recovered/Resolved]
  - Neck pain [Recovered/Resolved]
  - Dermatitis contact [Recovered/Resolved]
  - Anxiety [Unknown]
  - Hyperhidrosis [Not Recovered/Not Resolved]
  - Drug dependence [Recovered/Resolved]
  - Diarrhoea [Unknown]

NARRATIVE: CASE EVENT DATE: 2019
